FAERS Safety Report 13852300 (Version 4)
Quarter: 2017Q4

REPORT INFORMATION
  Report Type: Spontaneous
  Country: US (occurrence: US)
  Receive Date: 20170809
  Receipt Date: 20171026
  Transmission Date: 20180320
  Serious: Yes (Other)
  Sender: FDA-Public Use
  Company Number: US-BAYER-2017-150849

PATIENT
  Age: 52 Year
  Sex: Male

DRUGS (3)
  1. ADDERALL [Concomitant]
     Active Substance: AMPHETAMINE ASPARTATE\AMPHETAMINE SULFATE\DEXTROAMPHETAMINE SACCHARATE\DEXTROAMPHETAMINE SULFATE
     Dosage: UNK
  2. CIPRO [Suspect]
     Active Substance: CIPROFLOXACIN HYDROCHLORIDE
     Indication: URINARY TRACT INFECTION
     Dosage: UNK
     Dates: start: 2006
  3. CIPRO [Suspect]
     Active Substance: CIPROFLOXACIN HYDROCHLORIDE
     Indication: PROSTATITIS
     Dosage: UNK
     Dates: start: 2008

REACTIONS (23)
  - Testicular rupture [None]
  - Dysarthria [Not Recovered/Not Resolved]
  - Onychomadesis [Not Recovered/Not Resolved]
  - Mobility decreased [Not Recovered/Not Resolved]
  - Eye injury [None]
  - Pain [None]
  - Depressed mood [Not Recovered/Not Resolved]
  - Feeding disorder [Not Recovered/Not Resolved]
  - Adverse reaction [None]
  - Dry skin [None]
  - Rotator cuff syndrome [None]
  - Tooth loss [Not Recovered/Not Resolved]
  - Musculoskeletal disorder [Not Recovered/Not Resolved]
  - Male sexual dysfunction [Not Recovered/Not Resolved]
  - Peripheral swelling [None]
  - Tendon rupture [None]
  - Memory impairment [Not Recovered/Not Resolved]
  - Impaired work ability [Not Recovered/Not Resolved]
  - Skin fissures [None]
  - Drug hypersensitivity [None]
  - Malaise [None]
  - Poisoning [Not Recovered/Not Resolved]
  - Drug ineffective [None]

NARRATIVE: CASE EVENT DATE: 2006
